FAERS Safety Report 5272144-6 (Version None)
Quarter: 2007Q1

REPORT INFORMATION
  Report Type: 
  Country: None (occurrence: None)
  Receive Date: 20070322
  Receipt Date: 20070315
  Transmission Date: 20070707
  Serious: Yes (Hospitalization)
  Sender: FDA-Public Use
  Company Number: 2007CG00172

PATIENT
  Age: 21243 Day
  Sex: Male
  Weight: 56 kg

DRUGS (2)
  1. IRESSA [Suspect]
     Indication: SQUAMOUS CELL CARCINOMA
     Route: 048
     Dates: start: 20060925
  2. RADIOTHERAPY [Suspect]
     Indication: SQUAMOUS CELL CARCINOMA
     Dates: start: 20061002

REACTIONS (1)
  - HYPERTHERMIA [None]
